FAERS Safety Report 5465406-0 (Version None)
Quarter: 2007Q3

REPORT INFORMATION
  Report Type: 
  Country: None (occurrence: None)
  Receive Date: 20070924
  Receipt Date: 20070913
  Transmission Date: 20080115
  Serious: Yes (Other)
  Sender: FDA-Public Use
  Company Number: US-JNJFOC-20060303835

PATIENT
  Age: 50 Year
  Sex: Female

DRUGS (3)
  1. INFLIXIMAB [Suspect]
     Route: 042
  2. INFLIXIMAB [Suspect]
     Indication: CROHN'S DISEASE
     Route: 042
  3. 6-MP [Concomitant]
     Route: 048

REACTIONS (1)
  - MULTIPLE MYELOMA [None]
